FAERS Safety Report 6378739-0 (Version None)
Quarter: 2009Q3

REPORT INFORMATION
  Report Type: 
  Country: None (occurrence: None)
  Receive Date: 20090928
  Receipt Date: 20090923
  Transmission Date: 20100115
  Serious: Yes (Hospitalization)
  Sender: FDA-Public Use
  Company Number: US-B.I. PHARMACEUTICALS,INC./RIDGEFIELD-2009-BP-11218BP

PATIENT
  Sex: Female

DRUGS (10)
  1. SPIRIVA [Suspect]
     Indication: EMPHYSEMA
     Dosage: 18 MCG
     Route: 055
     Dates: start: 20090901
  2. SPIRIVA [Suspect]
     Indication: CHRONIC OBSTRUCTIVE PULMONARY DISEASE
  3. ALBUTEROL [Concomitant]
     Indication: ASTHMA
  4. ASPIRIN [Concomitant]
     Indication: ANGIOPATHY
  5. BUMETANIDE [Concomitant]
     Indication: FLUID RETENTION
  6. CLONIDINE [Concomitant]
     Indication: HYPERTENSION
  7. COZAAR [Concomitant]
     Indication: HYPERTENSION
  8. DIAZEPAM [Concomitant]
     Indication: MUSCLE SPASMS
  9. LORAZEPAM [Concomitant]
     Indication: NERVOUSNESS
  10. TRANDATE [Concomitant]
     Indication: HYPERTENSION

REACTIONS (4)
  - BLOOD POTASSIUM DECREASED [None]
  - PAIN [None]
  - RESPIRATORY FAILURE [None]
  - URINARY RETENTION [None]
